FAERS Safety Report 6034465-9 (Version None)
Quarter: 2009Q1

REPORT INFORMATION
  Report Type: 
  Country: None (occurrence: None)
  Receive Date: 20090108
  Receipt Date: 20081231
  Transmission Date: 20090719
  Serious: Yes (Hospitalization)
  Sender: FDA-Public Use
  Company Number: 2009SP000042

PATIENT
  Age: 51 Year
  Sex: Female

DRUGS (2)
  1. PEG-INTRON [Suspect]
     Indication: HEPATITIS
     Dosage: 150 MCG;QW
  2. REBETOL [Suspect]
     Indication: HEPATITIS
     Dosage: 1400 MG;QD;PO
     Route: 048

REACTIONS (1)
  - THROMBOSIS [None]
